FAERS Safety Report 10584700 (Version 1)
Quarter: 2014Q4

REPORT INFORMATION
  Report Type: Spontaneous
  Country: US (occurrence: None)
  Receive Date: 20141113
  Receipt Date: 20141113
  Transmission Date: 20150529
  Serious: Yes (Death)
  Sender: FDA-Public Use
  Company Number: QSC-2014-0839

PATIENT
  Age: 68 Year
  Sex: Female

DRUGS (3)
  1. H.P. ACTHAR [Suspect]
     Active Substance: CORTICOTROPIN
     Indication: DERMATOMYOSITIS
     Dosage: 80 UNITS, BIW, SUBUCUTANEOUS
     Route: 058
     Dates: start: 2013
  2. TRAMADOL [Concomitant]
     Active Substance: TRAMADOL
  3. ALBUTEROL. [Concomitant]
     Active Substance: ALBUTEROL

REACTIONS (1)
  - Death [None]

NARRATIVE: CASE EVENT DATE: 20141028
